FAERS Safety Report 7783451-7 (Version None)
Quarter: 2011Q3

REPORT INFORMATION
  Report Type: 
  Country: None (occurrence: None)
  Receive Date: 20110928
  Receipt Date: 20110928
  Transmission Date: 20111222
  Serious: Yes (Other)
  Sender: FDA-Public Use
  Company Number: None

PATIENT
  Sex: Male
  Weight: 33.565 kg

DRUGS (1)
  1. STRATTERA [Suspect]
     Indication: ATTENTION DEFICIT/HYPERACTIVITY DISORDER
     Dosage: 10 MG TABS, TOOK 2
     Route: 048
     Dates: start: 20110615, end: 20110925

REACTIONS (5)
  - CRYING [None]
  - ANGER [None]
  - AGITATION [None]
  - INTERMITTENT EXPLOSIVE DISORDER [None]
  - ABNORMAL BEHAVIOUR [None]
